FAERS Safety Report 7892675-X (Version None)
Quarter: 2011Q4

REPORT INFORMATION
  Report Type: 
  Country: None (occurrence: None)
  Receive Date: 20111102
  Receipt Date: 20111028
  Transmission Date: 20120403
  Serious: Yes (Life-Threatening, Hospitalization)
  Sender: FDA-Public Use
  Company Number: AUR-APL-2011-05630

PATIENT
  Age: 64 Year
  Sex: Female
  Weight: 100 kg

DRUGS (4)
  1. FENTANYL [Suspect]
     Indication: PAIN IN EXTREMITY
     Dosage: 300 MCG (12.5 MG,1 IN 1 HR),TRANSDERMAL ; 1200 MCG (50 MCG,1 IN 1 HR),TRANSDERMAL
     Route: 062
     Dates: start: 20110615
  2. GABAPENTIN [Suspect]
     Indication: ORAL PAIN
     Dosage: (300 MG),ORAL ; (600 MG),ORAL ; 2700 MG (900 MG,3 IN 1 D),ORAL
     Route: 048
     Dates: start: 20110104, end: 20110601
  3. GABAPENTIN [Suspect]
     Indication: ORAL PAIN
     Dosage: (300 MG),ORAL ; (600 MG),ORAL ; 2700 MG (900 MG,3 IN 1 D),ORAL
     Route: 048
     Dates: start: 20110601
  4. GLICLAZIDE (GLICLAZIDE) [Concomitant]

REACTIONS (3)
  - DRUG INTERACTION [None]
  - SOMNOLENCE [None]
  - RESPIRATORY ARREST [None]
